FAERS Safety Report 8909691 (Version 1)
Quarter: 2012Q4

REPORT INFORMATION
  Report Type: 
  Country: US (occurrence: US)
  Receive Date: 20121115
  Receipt Date: 20121115
  Transmission Date: 20130627
  Serious: Yes (Hospitalization)
  Sender: FDA-Public Use
  Company Number: US-BAYER-2012-116949

PATIENT
  Age: 21 Year
  Sex: Female

DRUGS (10)
  1. YAZ [Suspect]
  2. VANCOMYCIN [Concomitant]
  3. CEFTRIAXONE [Concomitant]
  4. ZYVOX [Concomitant]
  5. DAPTOMYCIN [Concomitant]
  6. MS CONTIN [Concomitant]
  7. OXYCODONE [Concomitant]
  8. LINEZOLID [Concomitant]
  9. COLACE [Concomitant]
  10. SENNA [Concomitant]

REACTIONS (3)
  - Deep vein thrombosis [None]
  - Septic embolus [None]
  - Septic embolus [None]
